FAERS Safety Report 19184495 (Version 1)
Quarter: 2021Q2

REPORT INFORMATION
  Report Type: Spontaneous
  Country: US (occurrence: US)
  Receive Date: 20210426
  Receipt Date: 20210426
  Transmission Date: 20210717
  Serious: No
  Sender: FDA-Public Use
  Company Number: None

PATIENT

DRUGS (2)
  1. ETONOGESTREL /ETHINYL ESTRADIOL RING [Suspect]
     Active Substance: ETHINYL ESTRADIOL\ETONOGESTREL
     Indication: CONTRACEPTION
     Dosage: ?          OTHER DOSE:1 RING;?
     Route: 067
  2. ELURYNG [Suspect]
     Active Substance: ETHINYL ESTRADIOL\ETONOGESTREL
     Indication: MENSTRUATION IRREGULAR
     Dosage: ?          OTHER DOSE:1 RING;?
     Route: 067

REACTIONS (3)
  - Vaginal haemorrhage [None]
  - Vulvovaginal burning sensation [None]
  - Treatment failure [None]
